FAERS Safety Report 8181050 (Version 6)
Quarter: 2016Q3

REPORT INFORMATION
  Report Type: Spontaneous
  Country: JP (occurrence: JP)
  Receive Date: 20111014
  Receipt Date: 20160825
  Transmission Date: 20161109
  Serious: Yes (Congenital Anomaly, Other)
  Sender: FDA-Public Use
  Company Number: JP-BRISTOL-MYERS SQUIBB COMPANY-16155558

PATIENT
  Age: 0 Day
  Sex: Male
  Weight: 1 kg

DRUGS (3)
  1. BIPERIDEN HCL [Concomitant]
     Active Substance: BIPERIDEN HYDROCHLORIDE
     Indication: PRODUCT USED FOR UNKNOWN INDICATION
     Dosage: TABS
     Route: 064
     Dates: end: 20110414
  2. ABILIFY [Suspect]
     Active Substance: ARIPIPRAZOLE
     Indication: PRODUCT USED FOR UNKNOWN INDICATION
     Dosage: 12 MG, QD
     Route: 064
     Dates: end: 20110929
  3. LENDORMIN [Concomitant]
     Active Substance: BROTIZOLAM
     Indication: PRODUCT USED FOR UNKNOWN INDICATION
     Dosage: TABS
     Route: 064
     Dates: end: 20110331

REACTIONS (10)
  - Trisomy 18 [Not Recovered/Not Resolved]
  - Ventricular septal defect [Unknown]
  - Pulmonary valve stenosis congenital [Unknown]
  - Foetal exposure during pregnancy [Recovered/Resolved]
  - Congenital hand malformation [Unknown]
  - Premature baby [Unknown]
  - Congenital hydrocephalus [Unknown]
  - Cardiac arrest [Unknown]
  - Congenital aortic valve stenosis [Unknown]
  - Pulmonary function test decreased [Unknown]

NARRATIVE: CASE EVENT DATE: 20110929
